FAERS Safety Report 8519251-X (Version None)
Quarter: 2012Q3

REPORT INFORMATION
  Report Type: 
  Country: None (occurrence: None)
  Receive Date: 20120718
  Receipt Date: 20120709
  Transmission Date: 20120928
  Serious: Yes (Other)
  Sender: FDA-Public Use
  Company Number: AU-EISAI INC-E3810-05673-SPO-AU

PATIENT
  Sex: Female

DRUGS (9)
  1. GLUCOSAMINE-CHONDROITIN-HERBAL MEDICINES [Suspect]
     Dosage: UNKNOWN
     Route: 065
  2. ACETAMINOPHEN [Suspect]
     Dosage: UNKNOWN
     Dates: end: 20101220
  3. MOBIC [Concomitant]
  4. RABEPRAZOLE SODIUM [Suspect]
     Route: 048
     Dates: start: 20100813, end: 20101220
  5. ACETAMINOPHEN [Suspect]
     Dosage: UNKNOWN
  6. TRIMETHOPRIM [Suspect]
     Route: 065
  7. ZOLOFT [Suspect]
     Dosage: ^INCREASED DOSE^
     Route: 065
  8. GLUCOSAMINE-CHONDROITIN-HERBAL MEDICINES [Suspect]
     Dosage: UNKNOWN
     Route: 065
     Dates: end: 20101220
  9. ZOLOFT [Suspect]
     Dosage: ^DECREASED DOSE^
     Route: 065
     Dates: end: 20101220

REACTIONS (6)
  - NAUSEA [None]
  - HEPATITIS [None]
  - LIVER INJURY [None]
  - URINARY TRACT INFECTION [None]
  - NIGHT SWEATS [None]
  - MALAISE [None]
